FAERS Safety Report 6113169-8 (Version None)
Quarter: 2009Q1

REPORT INFORMATION
  Report Type: 
  Country: None (occurrence: None)
  Receive Date: 20090312
  Receipt Date: 20090302
  Transmission Date: 20090719
  Serious: Yes (Hospitalization)
  Sender: FDA-Public Use
  Company Number: US-PFIZER INC-2009168354

PATIENT
  Sex: Female
  Weight: 65.8 kg

DRUGS (4)
  1. SUTENT [Suspect]
     Indication: HEPATIC NEOPLASM MALIGNANT NON-RESECTABLE
     Dosage: 37.5 MG, 1X/DAY
     Route: 048
     Dates: start: 20090126, end: 20090201
  2. DOXORUBICIN HCL [Suspect]
     Dosage: 50 MG, ONCE
     Route: 013
     Dates: start: 20090202, end: 20090202
  3. OXYCODONE [Concomitant]
     Dosage: UNK
     Dates: start: 20090202, end: 20090209
  4. LACTULOSE [Concomitant]
     Dosage: UNK
     Dates: start: 20090202

REACTIONS (7)
  - BLOOD ALBUMIN DECREASED [None]
  - BLOOD POTASSIUM DECREASED [None]
  - CHOLANGITIS [None]
  - CONFUSIONAL STATE [None]
  - DEHYDRATION [None]
  - FATIGUE [None]
  - SEPSIS [None]
